FAERS Safety Report 21065427 (Version 1)
Quarter: 2022Q3

REPORT INFORMATION
  Report Type: Report from Study
  Country: KR (occurrence: KR)
  Receive Date: 20220711
  Receipt Date: 20220711
  Transmission Date: 20221026
  Serious: Yes (Hospitalization)
  Sender: FDA-Public Use
  Company Number: KR-NOVARTISPH-NVSC2022KR086622

PATIENT
  Age: 64 Year
  Sex: Male
  Weight: 36 kg

DRUGS (7)
  1. CAPECITABINE [Suspect]
     Active Substance: CAPECITABINE
     Indication: Adenocarcinoma gastric
     Dosage: 750 MG/M2, BID (DAY1-15 OF DAY CYCLE)
     Route: 048
     Dates: start: 20220103
  2. CAPECITABINE [Suspect]
     Active Substance: CAPECITABINE
     Dosage: 500 MG, (CYCLE 5 DAY 1) AT 18:00
     Route: 048
     Dates: start: 20220511, end: 20220607
  3. ZANIDATAMAB [Suspect]
     Active Substance: ZANIDATAMAB
     Indication: Adenocarcinoma gastric
     Dosage: 8 MG/KG
     Route: 042
     Dates: start: 20220103
  4. ZANIDATAMAB [Suspect]
     Active Substance: ZANIDATAMAB
     Dosage: 6 MG/KG, Q3WK, (CYCLE 6 DAY 1)
     Route: 042
     Dates: start: 20220530
  5. ZANIDATAMAB [Suspect]
     Active Substance: ZANIDATAMAB
     Dosage: 6 MG/KG, Q3WK, (CYCLE 6 DAY 1)
     Route: 042
     Dates: start: 20220530
  6. PERIOLIMEL N4E [Concomitant]
     Indication: Product used for unknown indication
     Dosage: UNK
     Route: 065
     Dates: start: 20220404, end: 20220512
  7. OCTREOTIDE [Concomitant]
     Active Substance: OCTREOTIDE
     Indication: Diarrhoea
     Dosage: 0.1 MG/ML
     Route: 042
     Dates: start: 20220406

REACTIONS (1)
  - Asthenia [Recovered/Resolved with Sequelae]

NARRATIVE: CASE EVENT DATE: 20220405
